FAERS Safety Report 8056423-5 (Version None)
Quarter: 2012Q1

REPORT INFORMATION
  Report Type: 
  Country: None (occurrence: None)
  Receive Date: 20120119
  Receipt Date: 20120113
  Transmission Date: 20120608
  Serious: Yes (Hospitalization)
  Sender: FDA-Public Use
  Company Number: US-MERCK-1110USA02257

PATIENT
  Age: 68 Year
  Sex: Female

DRUGS (2)
  1. FOSAMAX [Suspect]
     Indication: OSTEOPENIA
     Route: 048
     Dates: start: 19981001, end: 20100901
  2. FOSAMAX PLUS D [Suspect]
     Indication: OSTEOPENIA
     Route: 048
     Dates: start: 20080122, end: 20100901

REACTIONS (45)
  - URGE INCONTINENCE [None]
  - URINARY INCONTINENCE [None]
  - FRACTURE DELAYED UNION [None]
  - BONE DISORDER [None]
  - ANXIETY [None]
  - GINGIVAL BLEEDING [None]
  - APTYALISM [None]
  - HYPERLIPIDAEMIA [None]
  - HYPERTONIC BLADDER [None]
  - FEAR [None]
  - TOOTH FRACTURE [None]
  - FEMUR FRACTURE [None]
  - HYPERGLYCAEMIA [None]
  - BALANCE DISORDER [None]
  - URINARY RETENTION [None]
  - INTERVERTEBRAL DISC DEGENERATION [None]
  - ORAL DISORDER [None]
  - UPPER RESPIRATORY TRACT INFECTION [None]
  - EYELID PTOSIS [None]
  - DRUG INEFFECTIVE [None]
  - DRY MOUTH [None]
  - VERTIGO [None]
  - GINGIVAL HYPERTROPHY [None]
  - DENTAL CARIES [None]
  - MOBILITY DECREASED [None]
  - ANAEMIA POSTOPERATIVE [None]
  - ARTHRALGIA [None]
  - HYPERCHOLESTEROLAEMIA [None]
  - STOMATITIS [None]
  - TOOTH DISORDER [None]
  - SKIN HYPERPIGMENTATION [None]
  - TREATMENT NONCOMPLIANCE [None]
  - FRACTURE DISPLACEMENT [None]
  - ESCHERICHIA URINARY TRACT INFECTION [None]
  - TENDONITIS [None]
  - STRESS FRACTURE [None]
  - FALL [None]
  - BREAST CANCER [None]
  - PERIODONTAL DISEASE [None]
  - URINARY TRACT INFECTION [None]
  - MYALGIA [None]
  - DENTAL NECROSIS [None]
  - MULTIPLE INJURIES [None]
  - THERMAL BURN [None]
  - GINGIVITIS [None]
